FAERS Safety Report 22251195 (Version 1)
Quarter: 2023Q2

REPORT INFORMATION
  Report Type: Spontaneous
  Country: US (occurrence: US)
  Receive Date: 20230425
  Receipt Date: 20230425
  Transmission Date: 20230721
  Serious: Yes (Other)
  Sender: FDA-Public Use
  Company Number: US-COOPERSURGICAL, INC.-US-2023CPS000967

PATIENT
  Age: 15 Year
  Sex: Female
  Weight: 48.98 kg

DRUGS (1)
  1. PARAGARD T 380A [Suspect]
     Active Substance: COPPER
     Indication: Contraception
     Dosage: UNK
     Route: 015
     Dates: start: 20230120, end: 20230322

REACTIONS (6)
  - Hypotension [Unknown]
  - Embedded device [Recovered/Resolved]
  - Procedural haemorrhage [Recovered/Resolved]
  - Device expulsion [Recovered/Resolved]
  - Discomfort [Unknown]
  - Pelvic pain [Unknown]

NARRATIVE: CASE EVENT DATE: 20230320
